FAERS Safety Report 8189927-5 (Version None)
Quarter: 2012Q1

REPORT INFORMATION
  Report Type: 
  Country: None (occurrence: None)
  Receive Date: 20120307
  Receipt Date: 20120301
  Transmission Date: 20120608
  Serious: Yes (Death, Other)
  Sender: FDA-Public Use
  Company Number: NL-ASTELLAS-2012EU000793

PATIENT
  Sex: Male
  Weight: 80 kg

DRUGS (16)
  1. SIROLIMUS [Suspect]
     Indication: KIDNEY TRANSPLANT REJECTION
     Dosage: 1 DF, UNKNOWN/D
     Route: 065
     Dates: start: 20101201, end: 20110202
  2. MYCOPHENOLATE MOFETIL [Suspect]
     Indication: KIDNEY TRANSPLANT REJECTION
     Dosage: 1500 MG, UNKNOWN/D
     Route: 065
     Dates: start: 20101005, end: 20101115
  3. MYCOPHENOLATE MOFETIL [Suspect]
     Dosage: 1500 MG, UNKNOWN/D
     Route: 065
     Dates: start: 20110118, end: 20110204
  4. RANITIDINE [Concomitant]
     Dosage: 150 MG, UID/QD
     Route: 065
     Dates: start: 20101130
  5. PREDNISOLONE [Concomitant]
     Dosage: 5 MG, BID
     Route: 065
  6. PREDNISONE TAB [Suspect]
     Indication: KIDNEY TRANSPLANT REJECTION
     Dosage: 10 MG, UNKNOWN/D
     Route: 065
     Dates: start: 20101004
  7. METOPROLOL TARTRATE [Concomitant]
     Dosage: 200 MG, UID/QD
     Route: 065
     Dates: start: 20080101
  8. VORICONAZOLE [Concomitant]
     Dosage: 800 MG, UNKNOWN/D
     Route: 048
     Dates: start: 20110421
  9. TACROLIMUS [Suspect]
     Indication: RENAL TRANSPLANT
     Dosage: UNK MG, OTHER
     Route: 048
     Dates: start: 20101005, end: 20101201
  10. NIFEDIPINE [Concomitant]
     Dosage: 60 MG, UID/QD
     Route: 065
     Dates: start: 20110306
  11. CALCIUM CARBONATE [Concomitant]
     Dosage: 500 MG, UID/QD
     Route: 065
     Dates: start: 20101022
  12. OMEPRAZOLE [Concomitant]
     Dosage: 20 MG, UID/QD
     Route: 065
  13. SIROLIMUS [Suspect]
     Dosage: 1 DF, UNKNOWN/D
     Route: 065
  14. RITUXIMAB [Suspect]
     Indication: RENAL TRANSPLANT
     Dosage: UNK MG/ML, OTHER
     Route: 042
     Dates: start: 20101004
  15. MYCOPHENOLATE MOFETIL [Suspect]
     Dosage: 1500 MG, UNKNOWN/D
     Route: 065
     Dates: start: 20110217, end: 20111207
  16. ALFACALCIDOL [Concomitant]
     Dosage: 0.25 UG, UID/QD
     Route: 065
     Dates: start: 20101030

REACTIONS (1)
  - PROGRESSIVE MULTIFOCAL LEUKOENCEPHALOPATHY [None]
